FAERS Safety Report 20797730 (Version 5)
Quarter: 2022Q3

REPORT INFORMATION
  Report Type: Report from Study
  Country: CN (occurrence: CN)
  Receive Date: 20220506
  Receipt Date: 20220720
  Transmission Date: 20221027
  Serious: Yes (Hospitalization)
  Sender: FDA-Public Use
  Company Number: CN-PFM-2022-03966

PATIENT
  Sex: Female
  Weight: 52 kg

DRUGS (69)
  1. ENCORAFENIB [Suspect]
     Active Substance: ENCORAFENIB
     Indication: Colon cancer
     Dosage: 300 MG, QD (1/DAY)
     Route: 048
     Dates: start: 20220402, end: 20220426
  2. ENCORAFENIB [Suspect]
     Active Substance: ENCORAFENIB
     Dosage: 300 MG, QD (1/DAY)
     Route: 048
     Dates: start: 20220520
  3. CETUXIMAB [Suspect]
     Active Substance: CETUXIMAB
     Indication: Colon cancer
     Dosage: 250 MG/M2, QW
     Route: 042
     Dates: start: 20220402, end: 20220429
  4. CETUXIMAB [Suspect]
     Active Substance: CETUXIMAB
     Dosage: 250 MG/M2, QW
     Route: 042
     Dates: start: 20220520
  5. COMPOUND AMINO ACIDS INJECTION (18AA-IX) [Concomitant]
     Dosage: 250 ML, ONCE
     Route: 042
     Dates: start: 20220425, end: 20220425
  6. FAT SOLUBLE VITAMIN INJECTION (II) [Concomitant]
     Dosage: 10 ML, QD (1/DAY)
     Route: 042
     Dates: start: 20220425, end: 20220426
  7. FAT SOLUBLE VITAMIN INJECTION (II) [Concomitant]
     Dosage: 1 BOTTLE, ONCE
     Route: 042
     Dates: start: 20220427, end: 20220427
  8. FAT SOLUBLE VITAMIN INJECTION (II) [Concomitant]
     Dosage: 1 BOTTLE, QD (1/DAY)
     Route: 042
     Dates: start: 20220429, end: 20220509
  9. GLYCERIN\LECITHIN\MEDIUM-CHAIN TRIGLYCERIDES\SOYBEAN OIL [Concomitant]
     Active Substance: GLYCERIN\LECITHIN\MEDIUM-CHAIN TRIGLYCERIDES\SOYBEAN OIL
     Dosage: 250 ML, QD (1/DAY)
     Route: 065
     Dates: start: 20220425, end: 20220425
  10. VITAMINS NOS [Concomitant]
     Active Substance: VITAMINS
     Dosage: 1 BOTTLE, QD
     Route: 042
     Dates: start: 20220425, end: 20220426
  11. COMPOUND ELECTROLYTES AND GLUCOSE INJECTION MG3 [Concomitant]
     Dosage: 500 ML, ONCE
     Route: 042
     Dates: start: 20220425, end: 20220426
  12. COMPOUND ELECTROLYTES AND GLUCOSE INJECTION MG3 [Concomitant]
     Dosage: 500 ML, ONCE
     Route: 042
     Dates: start: 20220427, end: 20220427
  13. COMPOUND ELECTROLYTES AND GLUCOSE INJECTION MG3 [Concomitant]
     Dosage: 500 ML, ONCE
     Route: 042
     Dates: start: 20220428, end: 20220428
  14. COMPOUND ELECTROLYTES AND GLUCOSE INJECTION MG3 [Concomitant]
     Dosage: 500 ML, ONCE
     Route: 042
     Dates: start: 20220429, end: 20220429
  15. COMPOUND ELECTROLYTES AND GLUCOSE INJECTION MG3 [Concomitant]
     Dosage: 500 ML, QD (1/DAY)
     Route: 042
     Dates: start: 20220501, end: 20220505
  16. COMPOUND ELECTROLYTES AND GLUCOSE INJECTION MG3 [Concomitant]
     Dosage: 500 ML, ONCE
     Route: 042
     Dates: start: 20220502, end: 20220502
  17. OMEPRAZOLE SODIUM [Concomitant]
     Active Substance: OMEPRAZOLE SODIUM
     Dosage: 40 MG, ONCE
     Route: 042
     Dates: start: 20220425, end: 20220426
  18. POTASSIUM CHLORIDE [Concomitant]
     Active Substance: POTASSIUM CHLORIDE
     Dosage: 10 ML, QD (1/DAY)
     Route: 042
     Dates: start: 20220425, end: 20220426
  19. POTASSIUM CHLORIDE [Concomitant]
     Active Substance: POTASSIUM CHLORIDE
     Dosage: 20 ML, QD (1/DAY)
     Route: 042
     Dates: start: 20220427, end: 20220427
  20. POTASSIUM CHLORIDE [Concomitant]
     Active Substance: POTASSIUM CHLORIDE
     Dosage: 20 ML, QD (1/DAY)
     Route: 042
     Dates: start: 20220429, end: 20220509
  21. DEXTROSE\SODIUM CHLORIDE [Concomitant]
     Active Substance: DEXTROSE\SODIUM CHLORIDE
     Dosage: 500 ML, QD (1/DAY)
     Route: 042
     Dates: start: 20220425, end: 20220426
  22. OCTREOTIDE ACETATE [Concomitant]
     Active Substance: OCTREOTIDE ACETATE
     Dosage: 0.1 MG, TID (3/DAY)
     Route: 058
     Dates: start: 20220425, end: 20220426
  23. FAT EMULSION, AMINO ACIDS (17) AND GLUCOSE (19%) [Concomitant]
     Dosage: 1026 ML, ONCE
     Route: 042
     Dates: start: 20220426, end: 20220426
  24. MULTI TRACE ELEMENTS (II) [Concomitant]
     Dosage: 10 ML, QD (1/DAY)
     Route: 042
     Dates: start: 20220426, end: 20220426
  25. MULTI TRACE ELEMENTS (II) [Concomitant]
     Dosage: 40 ML, QD (1/DAY)
     Route: 042
     Dates: start: 20220427, end: 20220427
  26. MULTI TRACE ELEMENTS (II) [Concomitant]
     Dosage: 40 ML, QD (1/DAY)
     Route: 042
     Dates: start: 20220429, end: 20220509
  27. MAGNESIUM SULFATE [Concomitant]
     Active Substance: MAGNESIUM SULFATE
     Dosage: 2.5 G, ONCE
     Route: 042
     Dates: start: 20220427, end: 20220427
  28. MAGNESIUM SULFATE [Concomitant]
     Active Substance: MAGNESIUM SULFATE
     Dosage: 2.5 G, QD (1/DAY)
     Route: 042
     Dates: start: 20220429, end: 20220509
  29. MEDIUM AND LONG CHAIN FAT EMULSION [Concomitant]
     Dosage: 1250 ML, ONCE
     Route: 042
     Dates: start: 20220427, end: 20220427
  30. MEDIUM AND LONG CHAIN FAT EMULSION [Concomitant]
     Dosage: 1250 ML, QD (1/DAY)
     Route: 042
     Dates: start: 20220429, end: 20220509
  31. INSULIN NOS [Concomitant]
     Active Substance: INSULIN NOS
     Dosage: 20 IU
     Route: 042
     Dates: start: 20220427, end: 20220427
  32. INSULIN NOS [Concomitant]
     Active Substance: INSULIN NOS
     Dosage: 20 IU, QD (1/DAY)
     Route: 042
     Dates: start: 20220429, end: 20220509
  33. ALANYL GLUTAMINE [Concomitant]
     Active Substance: ALANYL GLUTAMINE
     Dosage: 20 G, ONCE
     Route: 042
     Dates: start: 20220427, end: 20220427
  34. ALANYL GLUTAMINE [Concomitant]
     Active Substance: ALANYL GLUTAMINE
     Dosage: 20 G, QD (1/DAY)
     Route: 042
     Dates: start: 20220429, end: 20220509
  35. SODIUM GLYCEROPHOSPHATE [Concomitant]
     Active Substance: SODIUM GLYCEROPHOSPHATE
     Dosage: 10 ML, ONCE
     Route: 042
     Dates: start: 20220427, end: 20220427
  36. SODIUM GLYCEROPHOSPHATE [Concomitant]
     Active Substance: SODIUM GLYCEROPHOSPHATE
     Dosage: 10 ML, ONCE
     Route: 042
     Dates: start: 20220429, end: 20220509
  37. VITAMINS [Concomitant]
     Active Substance: VITAMINS
     Dosage: 1 BOTTLE
     Route: 042
     Dates: start: 20220427, end: 20220427
  38. VITAMINS [Concomitant]
     Active Substance: VITAMINS
     Dosage: 1 BOTTLE, QD (1/DAY)
     Route: 042
     Dates: start: 20220429, end: 20220509
  39. MORPHINE HYDROCHLORIDE [Concomitant]
     Active Substance: MORPHINE HYDROCHLORIDE
     Dosage: 10 MG
     Route: 058
     Dates: start: 20220427, end: 20220427
  40. MORPHINE HYDROCHLORIDE [Concomitant]
     Active Substance: MORPHINE HYDROCHLORIDE
     Dosage: 10 MG
     Route: 058
     Dates: start: 20220429, end: 20220429
  41. LIDOCAINE HYDROCHLORIDE [Concomitant]
     Active Substance: LIDOCAINE HYDROCHLORIDE
     Dosage: 0.1 G
     Route: 058
     Dates: start: 20220427, end: 20220427
  42. CEFAZOLIN SODIUM [Concomitant]
     Active Substance: CEFAZOLIN SODIUM
     Dosage: 1 G, ONCE
     Route: 042
     Dates: start: 20220427, end: 20220427
  43. CEFAZOLIN SODIUM [Concomitant]
     Active Substance: CEFAZOLIN SODIUM
     Dosage: 1 G
     Route: 023
     Dates: start: 20220427, end: 20220427
  44. CEFAZOLIN SODIUM [Concomitant]
     Active Substance: CEFAZOLIN SODIUM
     Dosage: 1 G, ONCE
     Route: 042
     Dates: start: 20220428, end: 20220428
  45. CEFAZOLIN SODIUM [Concomitant]
     Active Substance: CEFAZOLIN SODIUM
     Dosage: 1 G, BID (2/DAY)
     Route: 042
     Dates: start: 20220429, end: 20220429
  46. MORINIDAZOLE AND SODIUM CHLORIDE [Concomitant]
     Dosage: 100 ML, ONCE
     Route: 042
     Dates: start: 20220427, end: 20220428
  47. MORINIDAZOLE AND SODIUM CHLORIDE [Concomitant]
     Dosage: 100 ML, BID (2/DAY)
     Route: 042
     Dates: start: 20220429, end: 20220429
  48. MORINIDAZOLE AND SODIUM CHLORIDE [Concomitant]
     Dosage: 100 ML, ONCE
     Route: 042
     Dates: start: 20220429, end: 20220429
  49. HEPARIN SODIUM [Concomitant]
     Active Substance: HEPARIN SODIUM
     Dosage: 10 ML, QD (1/DAY) FOR LOCK FLUSH
     Route: 042
     Dates: start: 20220427, end: 20220511
  50. AMBROXOL HYDROCHLORIDE [Concomitant]
     Active Substance: AMBROXOL HYDROCHLORIDE
     Dosage: 30 ML, ONCE
     Route: 042
     Dates: start: 20220428, end: 20220428
  51. AMBROXOL HYDROCHLORIDE [Concomitant]
     Active Substance: AMBROXOL HYDROCHLORIDE
     Dosage: 15 ML, ONCE
     Route: 042
     Dates: start: 20220428, end: 20220428
  52. AMBROXOL HYDROCHLORIDE [Concomitant]
     Active Substance: AMBROXOL HYDROCHLORIDE
     Dosage: 15 ML, BID (2/DAY)
     Route: 042
     Dates: start: 20220428, end: 20220509
  53. ALBUMIN HUMAN [Concomitant]
     Active Substance: ALBUMIN HUMAN
     Dosage: 20 G, ONCE
     Route: 042
     Dates: start: 20220428, end: 20220428
  54. ALBUMIN HUMAN [Concomitant]
     Active Substance: ALBUMIN HUMAN
     Dosage: 40 G, ONCE
     Route: 042
     Dates: start: 20220428, end: 20220428
  55. ALBUMIN HUMAN [Concomitant]
     Active Substance: ALBUMIN HUMAN
     Dosage: 30 G, ONCE
     Route: 042
     Dates: start: 20220429, end: 20220429
  56. ALBUMIN HUMAN [Concomitant]
     Active Substance: ALBUMIN HUMAN
     Dosage: 30 G, QD (1/DAY)
     Route: 042
     Dates: start: 20220429, end: 20220506
  57. HEPARIN SODIUM [Concomitant]
     Active Substance: HEPARIN SODIUM
     Dosage: 0.3 ML, ONCE
     Route: 058
     Dates: start: 20220428, end: 20220428
  58. HEPARIN SODIUM [Concomitant]
     Active Substance: HEPARIN SODIUM
     Dosage: 0.3 ML, QD (1/DAY)
     Route: 058
     Dates: start: 20220429, end: 20220509
  59. RABEPRAZOLE SODIUM [Concomitant]
     Active Substance: RABEPRAZOLE SODIUM
     Dosage: 40 MG, ONCE
     Route: 042
     Dates: start: 20220428, end: 20220428
  60. RABEPRAZOLE SODIUM [Concomitant]
     Active Substance: RABEPRAZOLE SODIUM
     Dosage: 40 MG, QD (1/DAY)
     Route: 042
     Dates: start: 20220429, end: 20220509
  61. PARECOXIB SODIUM [Concomitant]
     Active Substance: PARECOXIB SODIUM
     Dosage: 40 MG, ONCE
     Route: 042
     Dates: start: 20220428, end: 20220428
  62. SUCCINYLATED GELATIN [Concomitant]
     Active Substance: SUCCINYLATED GELATIN
     Dosage: 500 ML, ONCE
     Route: 042
     Dates: start: 20220428, end: 20220428
  63. ERTAPENEM [Concomitant]
     Active Substance: ERTAPENEM
     Dosage: 1 G, ONCE
     Route: 042
     Dates: start: 20220429, end: 20220429
  64. METOPROLOL TARTRATE [Concomitant]
     Active Substance: METOPROLOL TARTRATE
     Dosage: 25 MG, ONCE
     Route: 048
     Dates: start: 20220429, end: 20220429
  65. DIAZEPAM [Concomitant]
     Active Substance: DIAZEPAM
     Dosage: 10 MG, ONCE
     Route: 030
     Dates: start: 20220502, end: 20220505
  66. OXYCODONE AND ACETAMINOPHEN [Concomitant]
     Active Substance: ACETAMINOPHEN\OXYCODONE HYDROCHLORIDE
     Dosage: 1 PIECE, PRN
     Route: 048
     Dates: start: 20220502, end: 20220505
  67. ENTERAL NUTRITIONAL POWDER(TP) [Concomitant]
     Dosage: 400 G, ONCE
     Route: 048
     Dates: start: 20220504, end: 20220504
  68. ENTERAL NUTRITIONAL POWDER(TP) [Concomitant]
     Dosage: 400 G, TID (3/DAY)
     Route: 048
     Dates: start: 20220505, end: 20220505
  69. ENTERAL NUTRITIONAL POWDER(TP) [Concomitant]
     Dosage: 800 G, ONCE
     Route: 048
     Dates: start: 20220510, end: 20220510

REACTIONS (1)
  - Intestinal obstruction [Recovered/Resolved]

NARRATIVE: CASE EVENT DATE: 20220426
